FAERS Safety Report 8118035-4 (Version None)
Quarter: 2012Q1

REPORT INFORMATION
  Report Type: 
  Country: None (occurrence: None)
  Receive Date: 20120202
  Receipt Date: 20120125
  Transmission Date: 20120608
  Serious: Yes (Hospitalization, Other)
  Sender: FDA-Public Use
  Company Number: GER/GER/12/0022803

PATIENT
  Age: 26 Year
  Sex: Female
  Weight: 99 kg

DRUGS (9)
  1. TRUXAL (CHLORPROTHIXENE) [Concomitant]
  2. SERTRALINE HYDROCHLORIDE [Suspect]
     Indication: DEPRESSION
     Dosage: 50 MG, 1 D, ORAL
     Route: 048
     Dates: start: 20110107
  3. FEMIBION (FEMIBION) [Concomitant]
  4. AMITRIPTYLINE HCL [Concomitant]
  5. MORPHINE SULFATE [Concomitant]
  6. DIMENHYDRINATE [Concomitant]
  7. ESCITALOPRAM [Concomitant]
  8. OXYCODONE HCL [Suspect]
     Indication: PAIN
     Dosage: 70 MG/DAY / 30-10-30 MG/D;  REDUCED TEMPORARILY TO 10 MG/D.
     Dates: start: 20101126
  9. CYMBALTA [Concomitant]

REACTIONS (2)
  - CAESAREAN SECTION [None]
  - MATERNAL EXPOSURE DURING PREGNANCY [None]
